FAERS Safety Report 22280539 (Version 1)
Quarter: 2023Q2

REPORT INFORMATION
  Report Type: Spontaneous
  Country: RU (occurrence: RU)
  Receive Date: 20230503
  Receipt Date: 20230503
  Transmission Date: 20230722
  Serious: Yes (Other)
  Sender: FDA-Public Use
  Company Number: RU-BAYER-2023A059870

PATIENT
  Age: 55 Year
  Sex: Male

DRUGS (3)
  1. XOFIGO [Suspect]
     Active Substance: RADIUM RA-223 DICHLORIDE
     Indication: Prostate cancer metastatic
     Dosage: UNK
     Dates: start: 20200701, end: 20200701
  2. XOFIGO [Suspect]
     Active Substance: RADIUM RA-223 DICHLORIDE
     Indication: Metastases to bone
  3. ABIRATERONE [Suspect]
     Active Substance: ABIRATERONE
     Dosage: UNK

REACTIONS (2)
  - Prostate cancer [None]
  - Pain [Recovered/Resolved]

NARRATIVE: CASE EVENT DATE: 20210801
